FAERS Safety Report 25111619 (Version 1)
Quarter: 2025Q1

REPORT INFORMATION
  Report Type: Other
  Country: US (occurrence: US)
  Receive Date: 20250324
  Receipt Date: 20250324
  Transmission Date: 20250409
  Serious: No
  Sender: TRAVERE THERAPEUTICS
  Company Number: US-TRAVERE-2025TVT00240

PATIENT
  Sex: Male

DRUGS (5)
  1. FILSPARI [Suspect]
     Active Substance: SPARSENTAN
     Indication: IgA nephropathy
     Route: 048
     Dates: start: 202501
  2. FILSPARI [Suspect]
     Active Substance: SPARSENTAN
     Dosage: INCRESED
     Route: 048
     Dates: start: 20250205, end: 20250212
  3. VALSARTAN [Suspect]
     Active Substance: VALSARTAN
     Indication: Hypertension
  4. VALSARTAN [Suspect]
     Active Substance: VALSARTAN
     Indication: Nephropathy
  5. ALLOPURINOL [Concomitant]
     Active Substance: ALLOPURINOL

REACTIONS (5)
  - Feeling abnormal [Unknown]
  - Nausea [Unknown]
  - Decreased appetite [Unknown]
  - Vomiting [Unknown]
  - Contraindicated product administered [Unknown]
